FAERS Safety Report 14527222 (Version 6)
Quarter: 2020Q1

REPORT INFORMATION
  Report Type: Spontaneous
  Country: FR (occurrence: FR)
  Receive Date: 20180213
  Receipt Date: 20200317
  Transmission Date: 20200409
  Serious: Yes (Hospitalization, Other)
  Sender: FDA-Public Use
  Company Number: FR-PFIZER INC-2018058456

PATIENT
  Age: 57 Year
  Sex: Male

DRUGS (6)
  1. ALPRAZOLAM. [Suspect]
     Active Substance: ALPRAZOLAM
     Dosage: 0.25 MG, 1X/DAY
     Route: 048
     Dates: start: 201711
  2. LEVETIRACETAM. [Suspect]
     Active Substance: LEVETIRACETAM
     Dosage: 1000 MG, 1X/DAY
     Route: 048
     Dates: start: 201711
  3. PANTOPRAZOLE [Suspect]
     Active Substance: PANTOPRAZOLE
     Dosage: 20 MG, 1X/DAY
     Route: 048
     Dates: start: 201711
  4. CRIZOTINIB [Suspect]
     Active Substance: CRIZOTINIB
     Indication: BRONCHIAL CARCINOMA
     Dosage: 500 MG, 1X/DAY
     Route: 048
     Dates: start: 20171209, end: 20180121
  5. MEDROL [Suspect]
     Active Substance: METHYLPREDNISOLONE
     Dosage: 16 MG, 1X/DAY
     Route: 048
     Dates: start: 201711, end: 20180110
  6. COVERAM [Suspect]
     Active Substance: AMLODIPINE\PERINDOPRIL
     Indication: HYPERTENSION
     Dosage: 10/5 MILLIGRAM, QD
     Route: 048
     Dates: end: 20180110

REACTIONS (1)
  - Interstitial lung disease [Recovered/Resolved]

NARRATIVE: CASE EVENT DATE: 201801
